FAERS Safety Report 7125786-7 (Version None)
Quarter: 2010Q4

REPORT INFORMATION
  Report Type: 
  Country: None (occurrence: None)
  Receive Date: 20101129
  Receipt Date: 20101118
  Transmission Date: 20110411
  Serious: Yes (Hospitalization)
  Sender: FDA-Public Use
  Company Number: B0685916A

PATIENT
  Sex: Female

DRUGS (1)
  1. AUGMENTIN [Suspect]
     Dosage: 2G PER DAY
     Route: 048
     Dates: start: 20101009, end: 20101012

REACTIONS (2)
  - OEDEMA PERIPHERAL [None]
  - RASH ERYTHEMATOUS [None]
